FAERS Safety Report 9844430 (Version 3)
Quarter: 2014Q1

REPORT INFORMATION
  Report Type: Spontaneous
  Country: CN (occurrence: CN)
  Receive Date: 20140127
  Receipt Date: 20140227
  Transmission Date: 20141002
  Serious: Yes (Life-Threatening)
  Sender: FDA-Public Use
  Company Number: CN-ROCHE-1335186

PATIENT
  Age: 55 Year
  Sex: Male

DRUGS (1)
  1. TAMIFLU [Suspect]
     Indication: AVIAN INFLUENZA
     Route: 065

REACTIONS (6)
  - Disease progression [Recovered/Resolved]
  - Septic shock [Recovering/Resolving]
  - Viral sepsis [Recovering/Resolving]
  - Pneumonia [Recovering/Resolving]
  - Acid base balance abnormal [Recovering/Resolving]
  - Bronchiectasis [Recovering/Resolving]
